FAERS Safety Report 20749514 (Version 1)
Quarter: 2022Q2

REPORT INFORMATION
  Report Type: Spontaneous
  Country: US (occurrence: None)
  Receive Date: 20220425
  Receipt Date: 20220425
  Transmission Date: 20220721
  Serious: No
  Sender: FDA-Public Use
  Company Number: None

PATIENT
  Age: 79 Year
  Sex: Female
  Weight: 59.74 kg

DRUGS (15)
  1. ERLOTINIB [Suspect]
     Active Substance: ERLOTINIB
     Indication: Lung neoplasm malignant
     Dosage: FREQUENCY : DAILY;?
     Route: 048
  2. ADVAIR DISKUS [Concomitant]
     Active Substance: FLUTICASONE PROPIONATE\SALMETEROL XINAFOATE
  3. ASPIRIN [Concomitant]
     Active Substance: ASPIRIN
  4. CALCIUM CARBONATE [Concomitant]
     Active Substance: CALCIUM CARBONATE
  5. Clear Eyes for Dry Eyes Plus Ophtha [Concomitant]
  6. COREG [Concomitant]
     Active Substance: CARVEDILOL
  7. ENALAPRIL MALEATE [Concomitant]
     Active Substance: ENALAPRIL MALEATE
  8. FUROSEMIDE [Concomitant]
     Active Substance: FUROSEMIDE
  9. LASIX [Concomitant]
     Active Substance: FUROSEMIDE
  10. LUMIGAN [Concomitant]
     Active Substance: BIMATOPROST
  11. MUPIROCIN [Concomitant]
     Active Substance: MUPIROCIN
  12. POTASSIUM CHLORIDE [Concomitant]
     Active Substance: POTASSIUM CHLORIDE
  13. RESTASIS [Concomitant]
     Active Substance: CYCLOSPORINE
  14. VASOTEC [Concomitant]
     Active Substance: ENALAPRIL MALEATE
  15. Wixela lntiub inhalation Aerosol Pow- [Concomitant]

REACTIONS (1)
  - Disease progression [None]
